FAERS Safety Report 8343533-8 (Version None)
Quarter: 2012Q2

REPORT INFORMATION
  Report Type: 
  Country: None (occurrence: None)
  Receive Date: 20120508
  Receipt Date: 20120507
  Transmission Date: 20120825
  Serious: Yes (Death)
  Sender: FDA-Public Use
  Company Number: BE-PFIZER INC-2012085859

PATIENT
  Age: 72 Year
  Sex: Male
  Weight: 62 kg

DRUGS (1)
  1. SUTENT [Suspect]
     Indication: METASTATIC RENAL CELL CARCINOMA
     Dosage: 50 MG, 1X/DAY
     Route: 048

REACTIONS (5)
  - DISEASE PROGRESSION [None]
  - RENAL FAILURE [None]
  - ACUTE PULMONARY OEDEMA [None]
  - GENERAL PHYSICAL HEALTH DETERIORATION [None]
  - METASTATIC RENAL CELL CARCINOMA [None]
